FAERS Safety Report 20505011 (Version 2)
Quarter: 2025Q3

REPORT INFORMATION
  Report Type: Spontaneous
  Country: EU (occurrence: EU)
  Receive Date: 20220223
  Receipt Date: 20250823
  Transmission Date: 20251021
  Serious: Yes (Hospitalization)
  Sender: AUROBINDO
  Company Number: EU-FMX-PRT-01-22-LIT

PATIENT
  Age: 10 Year
  Sex: Male

DRUGS (3)
  1. IBUPROFEN [Suspect]
     Active Substance: IBUPROFEN
     Indication: Pyrexia
     Route: 065
  2. ACETAMINOPHEN [Suspect]
     Active Substance: ACETAMINOPHEN
     Indication: Pyrexia
     Route: 065
  3. Immunoglobulin [Concomitant]
     Indication: Product used for unknown indication
     Route: 042

REACTIONS (1)
  - Drug ineffective [Recovered/Resolved]
